FAERS Safety Report 7149460-6 (Version None)
Quarter: 2010Q4

REPORT INFORMATION
  Report Type: 
  Country: None (occurrence: None)
  Receive Date: 20101209
  Receipt Date: 20101116
  Transmission Date: 20110411
  Serious: No
  Sender: FDA-Public Use
  Company Number: US-PFIZER INC-2010153103

PATIENT
  Age: 75 Year
  Sex: Female
  Weight: 54.422 kg

DRUGS (1)
  1. ADVIL [Suspect]
     Dosage: 2 DF, 2X/DAY
     Route: 048
     Dates: start: 20101111, end: 20101111

REACTIONS (1)
  - ABDOMINAL PAIN UPPER [None]
